FAERS Safety Report 22368347 (Version 1)
Quarter: 2023Q2

REPORT INFORMATION
  Report Type: Spontaneous
  Country: CN (occurrence: CN)
  Receive Date: 20230525
  Receipt Date: 20230525
  Transmission Date: 20230721
  Serious: Yes (Other)
  Sender: FDA-Public Use
  Company Number: None

PATIENT
  Age: 57 Year
  Sex: Male
  Weight: 68 kg

DRUGS (2)
  1. METRONIDAZOLE [Suspect]
     Active Substance: METRONIDAZOLE
     Indication: Gingivitis
     Dosage: 100 ML, ONCE DAILY, DOSAGE FORM: INJECTION
     Route: 041
     Dates: start: 20230518, end: 20230518
  2. AZLOCILLIN SODIUM [Suspect]
     Active Substance: AZLOCILLIN SODIUM
     Indication: Gingivitis
     Dosage: 4 G, TWICE DAILY
     Route: 041
     Dates: start: 20230518, end: 20230518

REACTIONS (4)
  - Infusion related reaction [Recovering/Resolving]
  - Chills [Recovering/Resolving]
  - Pyrexia [Recovering/Resolving]
  - Chest discomfort [Recovering/Resolving]

NARRATIVE: CASE EVENT DATE: 20230518
